FAERS Safety Report 8864652 (Version 1)
Quarter: 2012Q4

REPORT INFORMATION
  Report Type: 
  Country: US (occurrence: US)
  Receive Date: 20121024
  Receipt Date: 20121024
  Transmission Date: 20130627
  Serious: No
  Sender: FDA-Public Use
  Company Number: US-AMGEN-USASP2011068517

PATIENT
  Sex: Female
  Weight: 115.19 kg

DRUGS (5)
  1. ENBREL [Suspect]
     Indication: PRODUCT USED FOR UNKNOWN INDICATION
     Dosage: 50 mg, qwk
     Route: 058
  2. METHOTREXATE [Concomitant]
     Dosage: 2.5 mg, UNK
  3. SYNTHROID [Concomitant]
     Dosage: 88 mug, UNK
  4. BENAZEPRIL [Concomitant]
     Dosage: 10 mg, UNK
  5. FOLIC ACID [Concomitant]
     Dosage: 1 mg, UNK

REACTIONS (3)
  - Nasopharyngitis [Unknown]
  - Injection site erythema [Unknown]
  - Injection site irritation [Unknown]
